FAERS Safety Report 23992626 (Version 1)
Quarter: 2024Q2

REPORT INFORMATION
  Report Type: Spontaneous
  Country: GB (occurrence: GB)
  Receive Date: 20240620
  Receipt Date: 20240620
  Transmission Date: 20240715
  Serious: Yes (Other)
  Sender: FDA-Public Use
  Company Number: GB-JNJFOC-20240641375

PATIENT
  Age: 69 Year
  Sex: Female
  Weight: 113.9 kg

DRUGS (1)
  1. SIMPONI [Suspect]
     Active Substance: GOLIMUMAB
     Indication: Rheumatoid arthritis
     Route: 058

REACTIONS (4)
  - Nephrolithiasis [Unknown]
  - Pain [Unknown]
  - Surgery [Unknown]
  - Treatment noncompliance [Unknown]
